FAERS Safety Report 9329305 (Version 1)
Quarter: 2013Q2

REPORT INFORMATION
  Report Type: Spontaneous
  Country: GB (occurrence: GB)
  Receive Date: 20130604
  Receipt Date: 20130604
  Transmission Date: 20140414
  Serious: Yes (Disabling)
  Sender: FDA-Public Use
  Company Number: GB-GLAXOSMITHKLINE-B0894992A

PATIENT
  Sex: Female
  Weight: 56.4 kg

DRUGS (3)
  1. TROBALT [Suspect]
     Indication: EPILEPSY
     Dosage: 600MG PER DAY
     Route: 048
     Dates: start: 20121220, end: 201301
  2. LEVETIRACETAM [Concomitant]
     Route: 048
     Dates: start: 2008
  3. CLOBAZAM [Concomitant]
     Route: 048
     Dates: start: 2000

REACTIONS (2)
  - Dysuria [Not Recovered/Not Resolved]
  - Loss of bladder sensation [Not Recovered/Not Resolved]
